FAERS Safety Report 8032112-8 (Version None)
Quarter: 2012Q1

REPORT INFORMATION
  Report Type: 
  Country: None (occurrence: None)
  Receive Date: 20120109
  Receipt Date: 20120105
  Transmission Date: 20120608
  Serious: No
  Sender: FDA-Public Use
  Company Number: US-B.I. PHARMACEUTICALS,INC./RIDGEFIELD-2012-BP-00245BP

PATIENT
  Sex: Female

DRUGS (16)
  1. ALBUTEROL [Concomitant]
     Indication: CHRONIC OBSTRUCTIVE PULMONARY DISEASE
     Dosage: 8 PUF
     Route: 055
     Dates: start: 20090101
  2. ALDACTONE [Concomitant]
     Indication: FLUID RETENTION
     Dosage: 12.5 MG
     Route: 048
     Dates: start: 20070101
  3. MULTI-VITAMINS [Concomitant]
     Indication: SUPPLEMENTATION THERAPY
     Dates: start: 20060101
  4. LEVOTHYROXINE SODIUM [Concomitant]
     Indication: HYPOTHYROIDISM
     Dosage: 100 MCG
     Route: 048
     Dates: start: 19960101
  5. LISINOPRIL [Concomitant]
     Indication: HYPERTENSION
     Dosage: 10 MG
     Route: 048
     Dates: start: 20060101
  6. VICODIN [Concomitant]
     Indication: INTERVERTEBRAL DISC DEGENERATION
     Dates: start: 20090101
  7. ZANTAC [Concomitant]
     Indication: GASTROOESOPHAGEAL REFLUX DISEASE
     Dosage: 150 MG
     Route: 048
     Dates: start: 20060101
  8. MULTIVITAMIN [Concomitant]
     Indication: MACULAR DEGENERATION
     Dates: start: 20060101
  9. SPIRIVA [Suspect]
     Indication: CHRONIC OBSTRUCTIVE PULMONARY DISEASE
     Dosage: 18 MCG
     Route: 055
     Dates: start: 20070101
  10. EVISTA [Concomitant]
     Indication: OSTEOPOROSIS
     Dosage: 60 MG
     Route: 048
     Dates: start: 20060101
  11. SYSTANE EYE DROPS [Concomitant]
     Indication: DRY EYE
     Dates: start: 20050101
  12. ASPIRIN [Concomitant]
     Indication: PROPHYLAXIS
     Dosage: 325 MG
     Route: 048
     Dates: start: 20060101
  13. MILK OF MAGNESIA TAB [Concomitant]
     Indication: CONSTIPATION
  14. VITAMIN D [Concomitant]
     Indication: SUPPLEMENTATION THERAPY
     Dates: start: 20090101
  15. CITRACAL [Concomitant]
     Indication: BLOOD CALCIUM DECREASED
     Dates: start: 20050101
  16. VITAMIN C [Concomitant]
     Indication: SUPPLEMENTATION THERAPY
     Dosage: 500 MG
     Route: 048
     Dates: start: 20060101

REACTIONS (1)
  - DYSPNOEA [None]
